FAERS Safety Report 23686547 (Version 1)
Quarter: 2024Q1

REPORT INFORMATION
  Report Type: Spontaneous
  Country: US (occurrence: None)
  Receive Date: 20240328
  Receipt Date: 20240328
  Transmission Date: 20240409
  Serious: Yes (Other)
  Sender: FDA-Public Use
  Company Number: None

PATIENT
  Age: 43 Year
  Sex: Female
  Weight: 76.5 kg

DRUGS (3)
  1. KEPPRA [Suspect]
     Active Substance: LEVETIRACETAM
     Indication: Brain operation
     Dates: start: 20231127, end: 20240322
  2. KEPPRA [Suspect]
     Active Substance: LEVETIRACETAM
     Indication: Postoperative care
  3. Vistril [Concomitant]

REACTIONS (10)
  - Adverse drug reaction [None]
  - Dyspnoea [None]
  - Muscular weakness [None]
  - General physical condition abnormal [None]
  - Anxiety [None]
  - Balance disorder [None]
  - Cognitive disorder [None]
  - Movement disorder [None]
  - Tremor [None]
  - Impaired healing [None]

NARRATIVE: CASE EVENT DATE: 20231127
